FAERS Safety Report 24571958 (Version 1)
Quarter: 2024Q4

REPORT INFORMATION
  Report Type: Spontaneous
  Country: AU (occurrence: AU)
  Receive Date: 20241101
  Receipt Date: 20241101
  Transmission Date: 20250115
  Serious: Yes (Death, Other)
  Sender: EXELIXIS
  Company Number: AU-IPSEN Group, Research and Development-2024-21958

PATIENT
  Age: 59 Year
  Sex: Male

DRUGS (4)
  1. CABOMETYX [Suspect]
     Active Substance: CABOZANTINIB S-MALATE
     Indication: Renal cell carcinoma
     Dosage: UNK
     Route: 065
  2. IPILIMUMAB [Suspect]
     Active Substance: IPILIMUMAB
     Indication: Renal cell carcinoma
     Dosage: UNK
  3. NIVOLUMAB [Suspect]
     Active Substance: NIVOLUMAB
     Indication: Renal cell carcinoma
     Dosage: UNK
  4. PREDNISOLONE [Suspect]
     Active Substance: PREDNISOLONE
     Indication: Immune-mediated hepatitis
     Dosage: UNK

REACTIONS (5)
  - Malignant gastrointestinal obstruction [Fatal]
  - Immune-mediated hepatitis [Recovering/Resolving]
  - Malignant neoplasm progression [Unknown]
  - Hyperglycaemia [Unknown]
  - Rash [Unknown]
